FAERS Safety Report 9284784 (Version 2)
Quarter: 2013Q3

REPORT INFORMATION
  Report Type: Spontaneous
  Country: FR (occurrence: FR)
  Receive Date: 20130513
  Receipt Date: 20130819
  Transmission Date: 20140515
  Serious: Yes (Hospitalization)
  Sender: FDA-Public Use
  Company Number: FR-ABBOTT-13X-056-1087949-00

PATIENT
  Age: 26 Year
  Sex: Female

DRUGS (2)
  1. FLAMMAZINE [Suspect]
     Indication: THERMAL BURN
     Route: 061
     Dates: start: 20130413, end: 20130413
  2. MONURIL [Concomitant]
     Indication: URINARY TRACT INFECTION
     Dates: end: 20130412

REACTIONS (1)
  - Anaphylactic shock [Recovered/Resolved]
